FAERS Safety Report 19591598 (Version 2)
Quarter: 2021Q4

REPORT INFORMATION
  Report Type: Spontaneous
  Country: JP (occurrence: JP)
  Receive Date: 20210721
  Receipt Date: 20211216
  Transmission Date: 20220303
  Serious: Yes (Death)
  Sender: FDA-Public Use
  Company Number: JP-CELGENE-JPN-20210704654

PATIENT
  Age: 53 Year
  Sex: Female

DRUGS (1)
  1. REVLIMID [Suspect]
     Active Substance: LENALIDOMIDE
     Indication: Amyloidosis
     Dosage: UNKNOWN
     Route: 048

REACTIONS (2)
  - Death [Fatal]
  - Regurgitation [Unknown]

NARRATIVE: CASE EVENT DATE: 20210701
